FAERS Safety Report 9026299 (Version 1)
Quarter: 2012Q4

REPORT INFORMATION
  Report Type: Spontaneous
  Country: US (occurrence: None)
  Receive Date: 20121214
  Receipt Date: 20121214
  Transmission Date: 20130627
  Serious: Yes (Other)
  Sender: FDA-Public Use
  Company Number: None

PATIENT
  Age: 79 Year
  Sex: Male

DRUGS (1)
  1. XALKORI [Suspect]
     Indication: LUNG CANCER
     Dosage: 500mg 1 day
     Route: 048
     Dates: start: 20121113

REACTIONS (5)
  - Decreased appetite [None]
  - Fatigue [None]
  - Vomiting [None]
  - Nausea [None]
  - Dehydration [None]
